FAERS Safety Report 4944857-4 (Version None)
Quarter: 2006Q1

REPORT INFORMATION
  Report Type: 
  Country: None (occurrence: None)
  Receive Date: 20060315
  Receipt Date: 20060306
  Transmission Date: 20060701
  Serious: Yes (Death)
  Sender: FDA-Public Use
  Company Number: PL-MERCK-0603POL00002

PATIENT
  Age: 18 Month
  Sex: Male

DRUGS (11)
  1. CYTARABINE [Concomitant]
     Indication: LYMPHOCYTIC LEUKAEMIA
     Route: 065
     Dates: start: 20040101
  2. HYDROCORTISONE ACETATE AND OXYTETRACYCLINE HYDROCHLORIDE AND POLYMYXIN [Concomitant]
     Indication: SINUSITIS
     Route: 047
     Dates: start: 20040101
  3. AMPHOTERICIN B [Concomitant]
     Indication: ASPERGILLOSIS
     Route: 041
     Dates: start: 20040101
  4. CANCIDAS [Suspect]
     Indication: ASPERGILLOSIS
     Route: 051
     Dates: start: 20040101
  5. FLUDARABINE PHOSPHATE [Concomitant]
     Indication: LYMPHOCYTIC LEUKAEMIA
     Route: 065
     Dates: start: 20040101
  6. IDARUBICIN HYDROCHLORIDE [Concomitant]
     Indication: LYMPHOCYTIC LEUKAEMIA
     Route: 065
     Dates: start: 20040101
  7. AMPHOTERICIN B AND CHOLESTEROL AND DISTEAROYLPHOSPHATIDYLGLYCEROL AND [Concomitant]
     Indication: ASPERGILLOSIS
     Route: 051
     Dates: start: 20040101
  8. VORICONAZOLE [Concomitant]
     Indication: ASPERGILLOSIS
     Route: 051
     Dates: start: 20040101
  9. CLINDAMYCIN [Concomitant]
     Indication: ASPERGILLOSIS
     Route: 051
     Dates: start: 20040101
  10. VANCOMYCIN [Concomitant]
     Indication: ASPERGILLOSIS
     Route: 051
     Dates: start: 20040101
  11. DEXAMETHASONE [Concomitant]
     Indication: ASPERGILLOSIS
     Route: 065
     Dates: start: 20040101

REACTIONS (2)
  - DEATH [None]
  - DRUG ADMINISTRATION ERROR [None]
